FAERS Safety Report 7960583-1 (Version None)
Quarter: 2011Q4

REPORT INFORMATION
  Report Type: 
  Country: None (occurrence: None)
  Receive Date: 20111206
  Receipt Date: 20111121
  Transmission Date: 20120403
  Serious: Yes (Hospitalization, Other)
  Sender: FDA-Public Use
  Company Number: GB-ARROW GEN-2011-21036

PATIENT
  Age: 43 Year
  Sex: Male

DRUGS (8)
  1. CITALOPRAM HYDROBROMIDE [Suspect]
     Indication: PRODUCT USED FOR UNKNOWN INDICATION
     Dosage: 280 MG, SINGLE
     Route: 048
  2. FLUOXETINE HCL [Suspect]
     Indication: PRODUCT USED FOR UNKNOWN INDICATION
     Dosage: 600 MG, SINGLE
     Route: 049
  3. PERINDOPRIL (UNKNOWN) [Suspect]
     Indication: PRODUCT USED FOR UNKNOWN INDICATION
     Dosage: 120 MG, SINGLE
     Route: 048
  4. ALCOHOL [Suspect]
     Dosage: UNKNOWN
  5. ASPIRIN [Suspect]
     Indication: PRODUCT USED FOR UNKNOWN INDICATION
     Dosage: 7.5 G, SINGLE
     Route: 048
  6. AMLODIPINE [Suspect]
     Indication: HYPERTENSION
     Dosage: 56 TABLETS OF 10 MG AMLODIPINE
     Route: 048
  7. FOLIC ACID [Suspect]
     Indication: PRODUCT USED FOR UNKNOWN INDICATION
     Dosage: 30 TABLETS
     Route: 048
  8. ACETAMINOPHEN [Suspect]
     Indication: PRODUCT USED FOR UNKNOWN INDICATION
     Dosage: 16 G, SINGLE
     Route: 048

REACTIONS (4)
  - HYPOTENSION [None]
  - MULTIPLE DRUG OVERDOSE [None]
  - MENTAL STATUS CHANGES [None]
  - ANURIA [None]
